FAERS Safety Report 10216502 (Version 1)
Quarter: 2014Q2

REPORT INFORMATION
  Report Type: Spontaneous
  Country: US (occurrence: US)
  Receive Date: 20140604
  Receipt Date: 20140604
  Transmission Date: 20141212
  Serious: No
  Sender: FDA-Public Use
  Company Number: US-PFIZER INC-2014150308

PATIENT
  Age: 6 Year
  Sex: Male

DRUGS (1)
  1. QUILLIVANT XR [Suspect]
     Dosage: UNK

REACTIONS (1)
  - Headache [Unknown]
